FAERS Safety Report 21783298 (Version 1)
Quarter: 2022Q4

REPORT INFORMATION
  Report Type: Spontaneous
  Country: ES (occurrence: ES)
  Receive Date: 20221227
  Receipt Date: 20221227
  Transmission Date: 20230112
  Serious: Yes (Life-Threatening, Hospitalization, Other)
  Sender: FDA-Public Use
  Company Number: None

PATIENT
  Age: 81 Year
  Sex: Male
  Weight: 91.4 kg

DRUGS (2)
  1. ENOXAPARIN SODIUM [Interacting]
     Active Substance: ENOXAPARIN SODIUM
     Indication: Atrial fibrillation
     Dosage: UNK UNK, BID (80MG/12H DURING ADMISSION IN HENARES FROM 23/04 (INITIALLY 70MG/12H, I DO NOT KNOW THE
     Route: 058
     Dates: start: 20220423, end: 20220502
  2. ACENOCOUMAROL [Interacting]
     Active Substance: ACENOCOUMAROL
     Indication: Atrial fibrillation
     Dosage: REINTRODUCTION (BRIDGING THERAPY) IN THE PNEUMOLOGY WARD AFTER ICU STAY, IN CONCOMITANT TREATMENT WI
     Route: 048
     Dates: start: 20220501, end: 20220502

REACTIONS (3)
  - Shock haemorrhagic [Recovered/Resolved]
  - Retroperitoneal haematoma [Recovering/Resolving]
  - Abdominal wall haematoma [Recovering/Resolving]

NARRATIVE: CASE EVENT DATE: 20220502
